FAERS Safety Report 7121064-0 (Version None)
Quarter: 2010Q4

REPORT INFORMATION
  Report Type: 
  Country: None (occurrence: None)
  Receive Date: 20101124
  Receipt Date: 20101116
  Transmission Date: 20110411
  Serious: Yes (Other)
  Sender: FDA-Public Use
  Company Number: US-PFIZER INC-2010148677

PATIENT
  Age: 37 Year
  Sex: Male
  Weight: 56 kg

DRUGS (6)
  1. LINEZOLID [Suspect]
     Indication: TUBERCULOSIS
     Dosage: 600 MG, 1X/DAY
     Route: 048
     Dates: start: 20100616, end: 20100816
  2. LINEZOLID [Suspect]
     Dosage: 300 MG, 1X/DAY
     Route: 048
     Dates: start: 20100817, end: 20100826
  3. LINEZOLID [Suspect]
     Dosage: 300 MG, 1X/DAY
     Route: 048
     Dates: start: 20100901, end: 20101111
  4. LEVOFLOXACIN [Concomitant]
     Dosage: 800 MG, UNK
     Dates: start: 20051125, end: 20101111
  5. CLARITHROMYCIN [Concomitant]
     Dosage: 1000 MG, UNK
     Dates: start: 20051115, end: 20101111
  6. CYCLOSERINE [Concomitant]
     Dosage: UNK
     Dates: start: 20051125, end: 20101111

REACTIONS (1)
  - BLOOD CREATINE PHOSPHOKINASE INCREASED [None]
